FAERS Safety Report 4641375-8 (Version None)
Quarter: 2005Q2

REPORT INFORMATION
  Report Type: 
  Country: None (occurrence: None)
  Receive Date: 20050420
  Receipt Date: 20050420
  Transmission Date: 20051028
  Serious: Yes (Hospitalization)
  Sender: FDA-Public Use
  Company Number: None

PATIENT

DRUGS (4)
  1. HYDROCHLOROTHIAZIDE [Suspect]
     Dosage: 25 MG PO QD
     Route: 048
  2. ACYCLOVIR [Suspect]
     Dosage: 200 MG PO 5 TIMES PER DAY
     Route: 048
  3. ATAZANAVIR [Suspect]
     Dosage: 300 MG PO Q HS
     Route: 048
  4. LAMIVUDINE [Suspect]
     Dosage: 300 MG PO Q HS
     Route: 048

REACTIONS (2)
  - DEHYDRATION [None]
  - HYPONATRAEMIA [None]
